FAERS Safety Report 19785763 (Version 3)
Quarter: 2021Q4

REPORT INFORMATION
  Report Type: Report from Study
  Country: DE (occurrence: DE)
  Receive Date: 20210903
  Receipt Date: 20211011
  Transmission Date: 20220303
  Serious: Yes (Death, Hospitalization, Other)
  Sender: FDA-Public Use
  Company Number: DE-BRISTOL-MYERS SQUIBB COMPANY-BMS-2021-087805

PATIENT
  Age: 70 Year
  Sex: Female
  Weight: 70.7 kg

DRUGS (4)
  1. NIVOLUMAB [Suspect]
     Active Substance: NIVOLUMAB
     Indication: Non-small cell lung cancer
     Dosage: 360 MILLIGRAM
     Route: 065
     Dates: start: 20210628, end: 20210813
  2. IPILIMUMAB [Suspect]
     Active Substance: IPILIMUMAB
     Indication: Non-small cell lung cancer
     Dosage: 1 MILLIGRAM/KILOGRAM
     Route: 065
     Dates: start: 20210628, end: 20210813
  3. BEVACIZUMAB [Suspect]
     Active Substance: BEVACIZUMAB
     Indication: Non-small cell lung cancer
     Dosage: 400 MILLIGRAM
     Route: 065
     Dates: start: 20210628, end: 20210813
  4. PIPERACILLIN SODIUM\TAZOBACTAM SODIUM [Suspect]
     Active Substance: PIPERACILLIN SODIUM\TAZOBACTAM SODIUM
     Indication: Sepsis
     Dosage: 4.5 GRAM
     Route: 042
     Dates: start: 20210830

REACTIONS (3)
  - Death [Fatal]
  - Sepsis [Not Recovered/Not Resolved]
  - Anaphylactic reaction [Unknown]

NARRATIVE: CASE EVENT DATE: 20210830
